FAERS Safety Report 18743412 (Version 1)
Quarter: 2021Q1

REPORT INFORMATION
  Report Type: Spontaneous
  Country: CA (occurrence: CA)
  Receive Date: 20210115
  Receipt Date: 20210115
  Transmission Date: 20210419
  Serious: Yes (Other)
  Sender: FDA-Public Use
  Company Number: CA-TEVA-2021-CA-1867026

PATIENT
  Age: 20 Month
  Sex: Female
  Weight: 11 kg

DRUGS (19)
  1. ACETAMINOPHEN. [Concomitant]
     Active Substance: ACETAMINOPHEN
  2. CALCIUM [Concomitant]
     Active Substance: CALCIUM
  3. CHOLECALCIFEROL [Concomitant]
     Active Substance: CHOLECALCIFEROL
  4. HYDROCORTISONE. [Concomitant]
     Active Substance: HYDROCORTISONE
  5. OXYBUTYNIN. [Concomitant]
     Active Substance: OXYBUTYNIN CHLORIDE
     Route: 065
  6. PREDNISONE. [Concomitant]
     Active Substance: PREDNISONE
  7. EPINEPHRINE. [Concomitant]
     Active Substance: EPINEPHRINE
  8. MORPHINE [Suspect]
     Active Substance: MORPHINE
     Route: 042
  9. KETAMINE HYDROCHLORIDE INJECTION USP [Suspect]
     Active Substance: KETAMINE HYDROCHLORIDE
     Route: 042
  10. MIDAZOLAM. [Concomitant]
     Active Substance: MIDAZOLAM
  11. RANITIDINE. [Concomitant]
     Active Substance: RANITIDINE
  12. IBUPROFEN. [Concomitant]
     Active Substance: IBUPROFEN
  13. RITUXAN [Concomitant]
     Active Substance: RITUXIMAB
  14. METHYLPREDNISOLONE NOS [Concomitant]
     Active Substance: METHYLPREDNISOLONE
  15. MORPHINE [Suspect]
     Active Substance: MORPHINE
     Route: 065
  16. DIMENHYDRINATE. [Concomitant]
     Active Substance: DIMENHYDRINATE
  17. DIPHENHYDRAMINE. [Concomitant]
     Active Substance: DIPHENHYDRAMINE
  18. ONDANSETRON [Concomitant]
     Active Substance: ONDANSETRON
  19. POLYETHYLENE GLYCOL [Concomitant]
     Active Substance: POLYETHYLENE GLYCOLS

REACTIONS (9)
  - Bradypnoea [Recovered/Resolved]
  - Hypoventilation [Recovered/Resolved]
  - Respiratory rate decreased [Recovered/Resolved]
  - Somnolence [Recovered/Resolved]
  - Toxicity to various agents [Recovered/Resolved]
  - Infusion related reaction [Recovered/Resolved]
  - Respiratory depression [Recovered/Resolved]
  - Urinary retention [Recovered/Resolved]
  - Oxygen saturation decreased [Recovered/Resolved]
